FAERS Safety Report 7788123-0 (Version None)
Quarter: 2011Q3

REPORT INFORMATION
  Report Type: 
  Country: None (occurrence: None)
  Receive Date: 20110929
  Receipt Date: 20110929
  Transmission Date: 20111222
  Serious: Yes (Hospitalization)
  Sender: FDA-Public Use
  Company Number: None

PATIENT
  Age: 67 Year
  Sex: Male
  Weight: 94 kg

DRUGS (1)
  1. AMOXICILLIN AND CLAVULANATE POTASSIUM [Suspect]
     Indication: UPPER RESPIRATORY TRACT INFECTION
     Dosage: 500 MG BID PO
     Route: 048
     Dates: start: 20110728, end: 20110729

REACTIONS (4)
  - PRURITUS [None]
  - STEVENS-JOHNSON SYNDROME [None]
  - RASH [None]
  - URTICARIA [None]
